FAERS Safety Report 6643256-7 (Version None)
Quarter: 2010Q1

REPORT INFORMATION
  Report Type: 
  Country: None (occurrence: None)
  Receive Date: 20100319
  Receipt Date: 20100309
  Transmission Date: 20100710
  Serious: Yes (Congenital Anomaly)
  Sender: FDA-Public Use
  Company Number: US-JNJFOC-20100304244

PATIENT

DRUGS (3)
  1. ACETAMINOPHEN [Suspect]
     Route: 015
  2. ACETAMINOPHEN [Suspect]
     Indication: DRUG EXPOSURE DURING PREGNANCY
     Route: 015
  3. ASPIRIN [Suspect]
     Indication: DRUG EXPOSURE DURING PREGNANCY
     Route: 015

REACTIONS (2)
  - CYCLOPIA [None]
  - MULTIPLE CONGENITAL ABNORMALITIES [None]
